FAERS Safety Report 12106089 (Version 1)
Quarter: 2016Q1

REPORT INFORMATION
  Report Type: Spontaneous
  Country: US (occurrence: US)
  Receive Date: 20160223
  Receipt Date: 20160223
  Transmission Date: 20160526
  Serious: No
  Sender: FDA-Public Use
  Company Number: GXBR2015US002336

PATIENT
  Age: 63 Year
  Sex: Female
  Weight: 47.17 kg

DRUGS (4)
  1. COCONUT OIL [Concomitant]
     Active Substance: COCONUT OIL
     Indication: DRY SKIN
     Dosage: UNK DF, PRN
  2. VENTOLIN HFA [Concomitant]
     Active Substance: ALBUTEROL SULFATE
     Indication: CHRONIC OBSTRUCTIVE PULMONARY DISEASE
     Dosage: 3 PUFFS BID
     Route: 055
  3. MUPIROCIN. [Concomitant]
     Active Substance: MUPIROCIN
     Indication: INFECTION
     Dosage: UNK DF, UNK
     Route: 061
     Dates: start: 20151009
  4. CLOTRIMAZOLE AND BETAMETHASONE [Suspect]
     Active Substance: BETAMETHASONE\CLOTRIMAZOLE
     Indication: PSORIASIS
     Dosage: 1% / 0.05%, BID
     Route: 061
     Dates: start: 20151009

REACTIONS (6)
  - Dry mouth [Recovering/Resolving]
  - Dry skin [Not Recovered/Not Resolved]
  - Throat irritation [Recovering/Resolving]
  - Burning sensation [Recovered/Resolved]
  - Drug administration error [Recovered/Resolved]
  - Chest pain [Recovering/Resolving]

NARRATIVE: CASE EVENT DATE: 20151009
